FAERS Safety Report 8712857 (Version 2)
Quarter: 2012Q4

REPORT INFORMATION
  Report Type: 
  Country: JP (occurrence: JP)
  Receive Date: 20120808
  Receipt Date: 20120926
  Transmission Date: 20130627
  Serious: Yes (Death)
  Sender: FDA-Public Use
  Company Number: JP-GE HEALTHCARE MEDICAL DIAGNOSTICS-MSTR-NO-1205S-0028

PATIENT
  Age: 84 Year
  Sex: Male

DRUGS (4)
  1. METASTRON [Suspect]
     Indication: METASTATIC PAIN
     Route: 042
     Dates: start: 20120309, end: 20120309
  2. LEUPLIN [Concomitant]
  3. ODYNE [Concomitant]
  4. PROSTAL [Concomitant]

REACTIONS (5)
  - Pancytopenia [Fatal]
  - Nausea [Not Recovered/Not Resolved]
  - Vomiting [Not Recovered/Not Resolved]
  - Pyrexia [Not Recovered/Not Resolved]
  - Diarrhoea haemorrhagic [Recovering/Resolving]
